FAERS Safety Report 7999849-8 (Version None)
Quarter: 2011Q4

REPORT INFORMATION
  Report Type: 
  Country: None (occurrence: None)
  Receive Date: 20111222
  Receipt Date: 20111213
  Transmission Date: 20120403
  Serious: No
  Sender: FDA-Public Use
  Company Number: US-BIOGENIDEC-2011BI034784

PATIENT
  Sex: Female

DRUGS (2)
  1. AVONEX [Concomitant]
     Indication: MULTIPLE SCLEROSIS
     Route: 030
  2. TYSABRI [Suspect]
     Indication: MULTIPLE SCLEROSIS
     Route: 042
     Dates: start: 20110111, end: 20110803

REACTIONS (6)
  - GENERAL SYMPTOM [None]
  - MULTIPLE SCLEROSIS [None]
  - BALANCE DISORDER [None]
  - GAIT DISTURBANCE [None]
  - DRUG INTOLERANCE [None]
  - PAIN [None]
